FAERS Safety Report 5382007-3 (Version None)
Quarter: 2007Q3

REPORT INFORMATION
  Report Type: 
  Country: None (occurrence: None)
  Receive Date: 20070709
  Receipt Date: 20070626
  Transmission Date: 20080115
  Serious: Yes (Hospitalization)
  Sender: FDA-Public Use
  Company Number: B0478129A

PATIENT
  Age: 64 Year
  Sex: Male

DRUGS (4)
  1. AUGMENTIN '125' [Suspect]
     Indication: DRUG USE FOR UNKNOWN INDICATION
     Route: 048
     Dates: start: 20070525, end: 20070601
  2. UNKNOWN NAME [Concomitant]
  3. RENNIE [Concomitant]
  4. IBALGIN [Concomitant]
     Dates: start: 20070525, end: 20070601

REACTIONS (4)
  - DERMATITIS ALLERGIC [None]
  - GLOSSODYNIA [None]
  - ORAL DISCOMFORT [None]
  - RASH PAPULAR [None]
